FAERS Safety Report 7278602-7 (Version None)
Quarter: 2011Q1

REPORT INFORMATION
  Report Type: 
  Country: None (occurrence: None)
  Receive Date: 20110207
  Receipt Date: 20110202
  Transmission Date: 20110831
  Serious: Yes (Death)
  Sender: FDA-Public Use
  Company Number: PHHY2011CN08111

PATIENT
  Age: 61 Year
  Sex: Female

DRUGS (1)
  1. PARACETAMOL [Suspect]

REACTIONS (2)
  - MULTI-ORGAN FAILURE [None]
  - TOXICITY TO VARIOUS AGENTS [None]
